FAERS Safety Report 5919594-X (Version None)
Quarter: 2008Q4

REPORT INFORMATION
  Report Type: 
  Country: None (occurrence: None)
  Receive Date: 20081015
  Receipt Date: 20080424
  Transmission Date: 20090506
  Serious: Yes (Other)
  Sender: FDA-Public Use
  Company Number: US-BRISTOL-MYERS SQUIBB COMPANY-14160006

PATIENT
  Age: 60 Year
  Sex: Female

DRUGS (1)
  1. KENALOG-40 [Suspect]
     Indication: MACULAR OEDEMA
     Dosage: ROUTE - INTRAVITREAL
     Route: 047
     Dates: start: 20080414, end: 20080414

REACTIONS (1)
  - ENDOPHTHALMITIS [None]
